FAERS Safety Report 21446071 (Version 1)
Quarter: 2022Q4

REPORT INFORMATION
  Report Type: Spontaneous
  Country: US (occurrence: None)
  Receive Date: 20221011
  Receipt Date: 20221011
  Transmission Date: 20230113
  Serious: No
  Sender: FDA-Public Use
  Company Number: None

PATIENT
  Age: 57 Year
  Sex: Female
  Weight: 64.35 kg

DRUGS (32)
  1. SPIRONOLACTONE [Suspect]
     Active Substance: SPIRONOLACTONE
     Indication: Oedema
     Dosage: OTHER QUANTITY : 1 TABLET(S);?
     Route: 048
     Dates: start: 20221011, end: 20221011
  2. ADVAIR [Concomitant]
  3. MAXALT [Concomitant]
     Active Substance: RIZATRIPTAN BENZOATE
  4. BACLOFEN [Concomitant]
     Active Substance: BACLOFEN
  5. DEXILANT [Concomitant]
  6. HYDROXYZINE [Concomitant]
     Active Substance: HYDROXYZINE HYDROCHLORIDE
  7. PROPRANOLOL [Concomitant]
     Active Substance: PROPRANOLOL HYDROCHLORIDE
  8. PROCHLORPERAZINE [Concomitant]
     Active Substance: PROCHLORPERAZINE
  9. ALBUTEROL [Concomitant]
     Active Substance: ALBUTEROL
  10. KETOROLAC [Concomitant]
     Active Substance: KETOROLAC TROMETHAMINE
  11. ZIOPTAN [Concomitant]
  12. COLESTIPOL [Concomitant]
     Active Substance: COLESTIPOL
  13. Micronized [Concomitant]
  14. Colace Metamucil [Concomitant]
  15. Preparation  Fleet Enema [Concomitant]
  16. ALLEGRA-D [Concomitant]
     Active Substance: FEXOFENADINE HYDROCHLORIDE\PSEUDOEPHEDRINE HYDROCHLORIDE
  17. Opiva Advanced Alaway Allergy Eye Drops [Concomitant]
  18. CALCIUM [Concomitant]
     Active Substance: CALCIUM
  19. VITAMIN E [Concomitant]
     Active Substance: .ALPHA.-TOCOPHEROL
  20. ECHINACEA [Concomitant]
     Active Substance: ECHINACEA, UNSPECIFIED
  21. VITAMIN D3 [Concomitant]
     Active Substance: CHOLECALCIFEROL
  22. Valarian [Concomitant]
  23. Root K Complex [Concomitant]
  24. MAGNESIUM OXIDE [Concomitant]
     Active Substance: MAGNESIUM OXIDE
  25. NSI Probiotic [Concomitant]
  26. Vitamin C as Ascorbic Acid [Concomitant]
  27. MELATONIN [Concomitant]
  28. FISH OIL [Concomitant]
     Active Substance: FISH OIL
  29. CINNAMON [Concomitant]
     Active Substance: CINNAMON
  30. L-THEANINE [Concomitant]
  31. VITAMIN B COMPLEX [Suspect]
     Active Substance: CYANOCOBALAMIN\DEXPANTHENOL\NIACINAMIDE\PYRIDOXINE HYDROCHLORIDE\RIBOFLAVIN 5^-PHOSPHATE SODIUM\THIA
  32. Konjac Root [Concomitant]

REACTIONS (3)
  - Nausea [None]
  - Retching [None]
  - Urine output decreased [None]

NARRATIVE: CASE EVENT DATE: 20221011
